FAERS Safety Report 23150842 (Version 1)
Quarter: 2023Q4

REPORT INFORMATION
  Report Type: Spontaneous
  Country: FR (occurrence: FR)
  Receive Date: 20231106
  Receipt Date: 20231106
  Transmission Date: 20240110
  Serious: Yes (Other)
  Sender: FDA-Public Use
  Company Number: FR-BAUSCH-BL-2023-016404

PATIENT
  Age: 25 Year
  Sex: Female

DRUGS (2)
  1. TRETINOIN [Suspect]
     Active Substance: TRETINOIN
     Indication: Acute myeloid leukaemia
     Route: 065
  2. ARSENIC [Concomitant]
     Active Substance: ARSENIC
     Indication: Acute myeloid leukaemia
     Route: 065

REACTIONS (1)
  - Intracranial pressure increased [Recovered/Resolved]
